FAERS Safety Report 6796419-4 (Version None)
Quarter: 2010Q2

REPORT INFORMATION
  Report Type: 
  Country: None (occurrence: None)
  Receive Date: 20100627
  Receipt Date: 20100621
  Transmission Date: 20101027
  Serious: Yes (Other)
  Sender: FDA-Public Use
  Company Number: US-BRISTOL-MYERS SQUIBB COMPANY-15159353

PATIENT
  Age: 32 Year
  Sex: Female

DRUGS (3)
  1. CYTOXAN [Suspect]
     Indication: BREAST CANCER
     Dosage: 8 CYCLES OF 4 COMBINED REGIMENS OF ADRIAMYCIN AND CYTOXAN
  2. TAXOL [Suspect]
     Indication: BREAST CANCER
     Dosage: 4 REGIMEN OF TAXOL OVER 16 WK.
  3. ADRIAMYCIN PFS [Suspect]
     Dosage: 8 CYCLES OF 4 COMBINED REGIMENS OF ADRIAMYCIN AND CYTOXAN

REACTIONS (2)
  - AMENORRHOEA [None]
  - MIGRAINE [None]
